FAERS Safety Report 4736585-5 (Version None)
Quarter: 2005Q3

REPORT INFORMATION
  Report Type: 
  Country: None (occurrence: None)
  Receive Date: 20050803
  Receipt Date: 20050718
  Transmission Date: 20060218
  Serious: Yes (Hospitalization, Other)
  Sender: FDA-Public Use
  Company Number: 2005-DE-02792GD

PATIENT
  Age: 28 Year
  Sex: Male

DRUGS (5)
  1. MORPHINE SULFATE [Suspect]
     Indication: PAIN
  2. IBUPROFEN [Suspect]
     Indication: PAIN
  3. HYDROMORPHONE HCL [Suspect]
     Indication: PAIN
     Dosage: PATIENT-CONTROLLED), IV
     Route: 042
  4. HYDROXYUREA [Concomitant]
  5. FOLIC ACID [Concomitant]

REACTIONS (15)
  - ABDOMINAL DISTENSION [None]
  - ALANINE AMINOTRANSFERASE INCREASED [None]
  - ASPARTATE AMINOTRANSFERASE INCREASED [None]
  - BLOOD BILIRUBIN INCREASED [None]
  - BLOOD LACTATE DEHYDROGENASE INCREASED [None]
  - COLONIC PSEUDO-OBSTRUCTION [None]
  - EPIGASTRIC DISCOMFORT [None]
  - FATIGUE [None]
  - FLATULENCE [None]
  - HAEMOGLOBIN DECREASED [None]
  - HEPATOMEGALY [None]
  - INTESTINAL OBSTRUCTION [None]
  - JAUNDICE [None]
  - MEGACOLON [None]
  - SINUS TACHYCARDIA [None]
